FAERS Safety Report 5779319-8 (Version None)
Quarter: 2008Q2

REPORT INFORMATION
  Report Type: 
  Country: None (occurrence: None)
  Receive Date: 20080619
  Receipt Date: 20070821
  Transmission Date: 20081010
  Serious: No
  Sender: FDA-Public Use
  Company Number: US-ASTRAZENECA-2007UW20047

PATIENT
  Age: 78 Year
  Sex: Female
  Weight: 72.6 kg

DRUGS (3)
  1. ATACAND [Suspect]
     Indication: HYPERTENSION
     Route: 048
     Dates: start: 20070701
  2. PREMARIN [Concomitant]
  3. NEXIUM [Concomitant]

REACTIONS (3)
  - BACK PAIN [None]
  - PELVIC PAIN [None]
  - URINARY TRACT DISORDER [None]
